FAERS Safety Report 21047175 (Version 2)
Quarter: 2022Q3

REPORT INFORMATION
  Report Type: Spontaneous
  Country: DE (occurrence: DE)
  Receive Date: 20220706
  Receipt Date: 20220714
  Transmission Date: 20221027
  Serious: Yes (Hospitalization, Other)
  Sender: FDA-Public Use
  Company Number: DE-BAYER-2022A091876

PATIENT
  Age: 66 Year
  Sex: Male

DRUGS (1)
  1. EYLEA [Suspect]
     Active Substance: AFLIBERCEPT
     Indication: Macular degeneration
     Dosage: 1 DF, ONCE, BOTH EYES, FREQUENCY AND TOTAL NUMBER OF EYLEA DOSES BEFORE THE EVENT ARE UNKNOWN
     Dates: start: 20220620, end: 20220620

REACTIONS (3)
  - Visual impairment [Unknown]
  - Vitritis [Unknown]
  - Iridocyclitis [Unknown]

NARRATIVE: CASE EVENT DATE: 20220620
